FAERS Safety Report 25391499 (Version 1)
Quarter: 2025Q2

REPORT INFORMATION
  Report Type: Spontaneous
  Country: CN (occurrence: CN)
  Receive Date: 20250603
  Receipt Date: 20250603
  Transmission Date: 20250716
  Serious: Yes (Other)
  Sender: PURDUE
  Company Number: CN-NAPPMUNDI-GBR-2025-0125982

PATIENT
  Age: 69 Year
  Sex: Female
  Weight: 50 kg

DRUGS (2)
  1. OXYCODONE HYDROCHLORIDE [Suspect]
     Active Substance: OXYCODONE HYDROCHLORIDE
     Indication: Cancer pain
     Dosage: 10 MILLIGRAM, BID
     Route: 048
     Dates: start: 20250517, end: 202505
  2. OXYCODONE HYDROCHLORIDE [Suspect]
     Active Substance: OXYCODONE HYDROCHLORIDE
     Dosage: 40 MILLIGRAM, BID
     Route: 048
     Dates: start: 20250517, end: 202505

REACTIONS (4)
  - Depressed level of consciousness [Recovered/Resolved]
  - Pyrexia [Recovered/Resolved]
  - Miosis [Recovered/Resolved]
  - Overdose [Unknown]

NARRATIVE: CASE EVENT DATE: 20250518
